FAERS Safety Report 15252384 (Version 10)
Quarter: 2020Q4

REPORT INFORMATION
  Report Type: Report from Study
  Country: US (occurrence: US)
  Receive Date: 20180807
  Receipt Date: 20201221
  Transmission Date: 20210113
  Serious: Yes (Hospitalization, Other)
  Sender: FDA-Public Use
  Company Number: US-MALLINCKRODT-T201801778

PATIENT
  Age: 51 Year
  Sex: Male
  Weight: 113 kg

DRUGS (28)
  1. REPOSITORY CORTICOTROPIN INJECTION [Suspect]
     Active Substance: CORTICOTROPIN
     Indication: POLYMYOSITIS
     Dosage: 80 UNITS/1 ML, 2 TIMES PER WEEK (MONDAY / THURSDAY AND TUESDAY/ FRIDAY)
     Route: 058
     Dates: start: 20180329, end: 2018
  2. LIPITOR [Suspect]
     Active Substance: ATORVASTATIN CALCIUM
     Indication: BLOOD CHOLESTEROL ABNORMAL
     Dosage: 80 MILLIGRAM, UNK
     Route: 065
     Dates: start: 201808, end: 201811
  3. PREDNISONE. [Concomitant]
     Active Substance: PREDNISONE
     Indication: PRODUCT USED FOR UNKNOWN INDICATION
     Dosage: UNK, UNK
     Route: 065
     Dates: start: 2017
  4. PREDNISONE. [Concomitant]
     Active Substance: PREDNISONE
     Dosage: 5 MILLIGRAM, UNK
     Route: 065
  5. PREDNISONE. [Concomitant]
     Active Substance: PREDNISONE
     Dosage: 1 MILLIGRAM, UNK
     Route: 065
     Dates: start: 20190715, end: 2019
  6. PLAVIX [Concomitant]
     Active Substance: CLOPIDOGREL BISULFATE
     Indication: PRODUCT USED FOR UNKNOWN INDICATION
     Dosage: UNK, UNK
     Route: 065
  7. REPOSITORY CORTICOTROPIN INJECTION [Suspect]
     Active Substance: CORTICOTROPIN
     Indication: DERMATOMYOSITIS
     Dosage: 80 UNITS/1ML ONE INJECTION WEEKLY
     Route: 058
     Dates: start: 2018, end: 2018
  8. REPOSITORY CORTICOTROPIN INJECTION [Suspect]
     Active Substance: CORTICOTROPIN
     Dosage: 80 UNITS/1 ML, 2 TIMES PER WEEK (TUESDAY/ FRIDAY)
     Route: 058
     Dates: start: 201807, end: 2018
  9. NORVASC [Concomitant]
     Active Substance: AMLODIPINE BESYLATE
     Indication: BLOOD PRESSURE INCREASED
     Dosage: 10 MILLIGRAM, UNK
     Route: 065
  10. REPOSITORY CORTICOTROPIN INJECTION [Suspect]
     Active Substance: CORTICOTROPIN
     Dosage: 80 UNITS/ 1 ML, 2 TIMES PER WEEK (MONDAY/ THURSDAY)
     Route: 058
     Dates: end: 202002
  11. PREDNISONE. [Concomitant]
     Active Substance: PREDNISONE
     Dosage: 10 MILLIGRAM, UNK
     Route: 065
  12. PREDNISONE. [Concomitant]
     Active Substance: PREDNISONE
     Dosage: 5 MILLIGRAM, QD
     Route: 065
  13. PREDNISONE. [Concomitant]
     Active Substance: PREDNISONE
     Dosage: 3 MILLIGRAM FOR A MONTH
     Route: 065
  14. METHOTREXATE. [Concomitant]
     Active Substance: METHOTREXATE
     Indication: PRODUCT USED FOR UNKNOWN INDICATION
     Dosage: UNK, UNK
     Route: 065
  15. NITROGLYCERIN. [Concomitant]
     Active Substance: NITROGLYCERIN
     Indication: PRODUCT USED FOR UNKNOWN INDICATION
     Dosage: UNK, UNK
     Route: 065
  16. REPOSITORY CORTICOTROPIN INJECTION [Suspect]
     Active Substance: CORTICOTROPIN
     Dosage: 80 UNITS/1 ML, 2 TIMES PER WEEK (SUNDAY/THURSDAY)
     Route: 058
  17. REPOSITORY CORTICOTROPIN INJECTION [Suspect]
     Active Substance: CORTICOTROPIN
     Dosage: 80 UNITS/ 1 ML, 2 TIMES PER WEEK (MONDAY/ THURSDAY)
     Route: 058
     Dates: start: 20200217
  18. PREDNISONE. [Concomitant]
     Active Substance: PREDNISONE
     Dosage: 7.5 MILLIGRAM, UNK
     Route: 065
  19. NORVASC [Concomitant]
     Active Substance: AMLODIPINE BESYLATE
     Dosage: 5 MILLIGRAM, UNK
     Route: 065
  20. PREDNISONE. [Concomitant]
     Active Substance: PREDNISONE
     Dosage: 4 MILLIGRAM, FOR 4 WEEKS AND THEN EVERY 4 WEEKS
     Route: 065
  21. REPATHA [Concomitant]
     Active Substance: EVOLOCUMAB
     Indication: BLOOD CHOLESTEROL ABNORMAL
     Dosage: UNK, UNK
     Route: 065
  22. AZATHIOPRINE. [Concomitant]
     Active Substance: AZATHIOPRINE
     Indication: PRODUCT USED FOR UNKNOWN INDICATION
     Dosage: 100 MILLIGRAM, UNK
     Route: 065
  23. REPOSITORY CORTICOTROPIN INJECTION [Suspect]
     Active Substance: CORTICOTROPIN
     Dosage: 80 UNITS/1 ML, 2 TIMES PER WEEK (MONDAY/THURSDAY)
     Route: 058
     Dates: start: 2018
  24. PREDNISONE. [Concomitant]
     Active Substance: PREDNISONE
     Dosage: 15 MILLIGRAM, UNK
     Route: 065
  25. ZETIA [Concomitant]
     Active Substance: EZETIMIBE
     Indication: PRODUCT USED FOR UNKNOWN INDICATION
     Dosage: UNK, UNK
     Route: 065
  26. BRILINTA [Suspect]
     Active Substance: TICAGRELOR
     Indication: PRODUCT USED FOR UNKNOWN INDICATION
     Dosage: UNK
     Route: 065
  27. PREDNISONE. [Concomitant]
     Active Substance: PREDNISONE
     Dosage: 2 MILLIGRAM, UNK
     Route: 065
     Dates: end: 2019
  28. IMURAN [Concomitant]
     Active Substance: AZATHIOPRINE
     Indication: PRODUCT USED FOR UNKNOWN INDICATION
     Dosage: 100 MILLIGRAM, QD
     Route: 065

REACTIONS (22)
  - Asthenia [Not Recovered/Not Resolved]
  - Myocardial infarction [Recovering/Resolving]
  - Muscle strain [Not Recovered/Not Resolved]
  - Troponin increased [Recovering/Resolving]
  - Presyncope [Recovering/Resolving]
  - Weight decreased [Not Recovered/Not Resolved]
  - Hypersomnia [Recovering/Resolving]
  - Dyspnoea [Recovering/Resolving]
  - Product dose omission issue [Recovered/Resolved]
  - Wrong technique in product usage process [Unknown]
  - Blood pressure increased [Recovering/Resolving]
  - Blood creatine phosphokinase increased [Recovering/Resolving]
  - Fall [Recovering/Resolving]
  - Fatigue [Unknown]
  - Coronary artery disease [Recovering/Resolving]
  - Cerebrovascular accident [Not Recovered/Not Resolved]
  - Muscular weakness [Not Recovered/Not Resolved]
  - Hepatic enzyme increased [Not Recovered/Not Resolved]
  - Blood glucose increased [Unknown]
  - Influenza [Recovered/Resolved]
  - Treatment noncompliance [Not Recovered/Not Resolved]
  - Product storage error [Unknown]

NARRATIVE: CASE EVENT DATE: 2018
